FAERS Safety Report 14228407 (Version 1)
Quarter: 2017Q4

REPORT INFORMATION
  Report Type: Spontaneous
  Country: US (occurrence: None)
  Receive Date: 20171124
  Receipt Date: 20171124
  Transmission Date: 20180321
  Serious: No
  Sender: FDA-Public Use
  Company Number: None

PATIENT
  Age: 93 Year
  Sex: Female

DRUGS (1)
  1. IBRANCE [Suspect]
     Active Substance: PALBOCICLIB
     Indication: BREAST CANCER FEMALE
     Dosage: 1 CAPSULE DAILY FOR 21 DAYS ON AND 7 DAYS OFF BY MOUTH
     Route: 048
     Dates: start: 20170906, end: 20171013

REACTIONS (3)
  - Irritability [None]
  - Delusion [None]
  - Confusional state [None]

NARRATIVE: CASE EVENT DATE: 20171013
